FAERS Safety Report 8499824-3 (Version None)
Quarter: 2012Q3

REPORT INFORMATION
  Report Type: 
  Country: None (occurrence: None)
  Receive Date: 20120710
  Receipt Date: 20120702
  Transmission Date: 20120928
  Serious: Yes (Hospitalization)
  Sender: FDA-Public Use
  Company Number: IT-PFIZER INC-2012159984

PATIENT
  Age: 55 Year
  Sex: Male

DRUGS (3)
  1. AZATHIOPRINE [Suspect]
     Indication: COLITIS ULCERATIVE
     Dosage: 50 MG, 2X/DAY
     Route: 048
     Dates: start: 20120429, end: 20120519
  2. SULFASALAZINE [Suspect]
     Indication: COLITIS ULCERATIVE
     Dosage: 500 MG, 4X/DAY
     Route: 048
     Dates: start: 20120321, end: 20120702
  3. CLIPPER [Concomitant]
     Dosage: 2 DF, UNK
     Route: 048

REACTIONS (2)
  - VOMITING [None]
  - ABDOMINAL PAIN UPPER [None]
